FAERS Safety Report 26178375 (Version 1)
Quarter: 2025Q4

REPORT INFORMATION
  Report Type: Spontaneous
  Country: CN (occurrence: CN)
  Receive Date: 20251219
  Receipt Date: 20251219
  Transmission Date: 20260117
  Serious: Yes (Hospitalization, Other)
  Sender: Haleon PLC
  Company Number: CN-HALEON-2279591

PATIENT
  Age: 77 Year
  Sex: Male
  Weight: 61 kg

DRUGS (1)
  1. IBUPROFEN [Suspect]
     Active Substance: IBUPROFEN
     Indication: Pyrexia
     Dosage: SUSTAINED-RELEASE CAPSULES
     Dates: start: 20251112, end: 20251114

REACTIONS (10)
  - Penile erosion [Recovering/Resolving]
  - Skin erosion [Recovering/Resolving]
  - Blister rupture [Recovering/Resolving]
  - Epidermolysis bullosa [Recovering/Resolving]
  - Blister [Recovering/Resolving]
  - Foreskin oedema [Recovering/Resolving]
  - Erythema [Recovered/Resolved]
  - Pruritus [Recovering/Resolving]
  - Pain [Recovering/Resolving]
  - Drug eruption [Recovering/Resolving]

NARRATIVE: CASE EVENT DATE: 20251114
